FAERS Safety Report 6547376-7 (Version None)
Quarter: 2010Q1

REPORT INFORMATION
  Report Type: 
  Country: None (occurrence: None)
  Receive Date: 20100122
  Receipt Date: 20100112
  Transmission Date: 20100710
  Serious: Yes (Death)
  Sender: FDA-Public Use
  Company Number: DE-AMGEN-US372946

PATIENT
  Sex: Male

DRUGS (9)
  1. ENBREL [Suspect]
     Indication: PSORIASIS
     Route: 058
     Dates: start: 20090726
  2. FUROSEMIDE [Concomitant]
  3. METOPROLOL TARTRATE [Concomitant]
  4. L-THYROXIN [Concomitant]
  5. OLMETEC [Concomitant]
  6. ALLOPURINOL [Concomitant]
  7. FALITHROM [Concomitant]
  8. DIGITOXIN INJ [Concomitant]
  9. ACETYLSALICYLIC ACID [Concomitant]

REACTIONS (1)
  - PANCREATIC CARCINOMA [None]
